FAERS Safety Report 6993621-3 (Version None)
Quarter: 2010Q3

REPORT INFORMATION
  Report Type: 
  Country: None (occurrence: None)
  Receive Date: 20100917
  Receipt Date: 20070614
  Transmission Date: 20110219
  Serious: Yes (Other)
  Sender: FDA-Public Use
  Company Number: US-ASTRAZENECA-2006UW26347

PATIENT
  Age: 47 Year
  Sex: Female
  Weight: 133.4 kg

DRUGS (20)
  1. SEROQUEL [Suspect]
     Indication: SCHIZOPHRENIA
     Route: 048
     Dates: start: 20010101, end: 20030101
  2. SEROQUEL [Suspect]
     Indication: BIPOLAR DISORDER
     Route: 048
     Dates: start: 20010101, end: 20030101
  3. SEROQUEL [Suspect]
     Indication: DEPRESSION
     Route: 048
     Dates: start: 20010101, end: 20030101
  4. SEROQUEL [Suspect]
     Route: 048
     Dates: start: 20011015
  5. SEROQUEL [Suspect]
     Route: 048
     Dates: start: 20011015
  6. SEROQUEL [Suspect]
     Route: 048
     Dates: start: 20011015
  7. SEROQUEL [Suspect]
     Route: 048
     Dates: start: 20030127
  8. SEROQUEL [Suspect]
     Route: 048
     Dates: start: 20030127
  9. SEROQUEL [Suspect]
     Route: 048
     Dates: start: 20030127
  10. HALDOL [Concomitant]
  11. RISPERDAL [Concomitant]
  12. THORAZINE [Concomitant]
  13. PROZAC [Concomitant]
     Dosage: 40 MG-60 MG
     Route: 048
     Dates: start: 20011015
  14. BUSPAR [Concomitant]
     Route: 048
     Dates: start: 20011015
  15. LITHIUM CARBONATE [Concomitant]
     Dosage: 450 MG-900 MG
     Route: 048
     Dates: start: 20011015
  16. VISTARIL [Concomitant]
     Route: 048
     Dates: start: 20011015
  17. COGENTIN [Concomitant]
     Dosage: 2 MG-5 MG
     Route: 048
     Dates: start: 20011015, end: 20030211
  18. WELLBUTRIN SR [Concomitant]
     Dosage: 100 MG-150 MG
     Route: 048
     Dates: start: 20030127
  19. KLONOPIN [Concomitant]
     Indication: ANXIETY
     Dosage: 0.5 MG-1 MG
     Route: 048
     Dates: start: 20030127
  20. LIPITOR [Concomitant]
     Route: 048
     Dates: start: 20030205

REACTIONS (3)
  - DIABETES MELLITUS [None]
  - TARDIVE DYSKINESIA [None]
  - TYPE 2 DIABETES MELLITUS [None]
